FAERS Safety Report 22332525 (Version 1)
Quarter: 2023Q2

REPORT INFORMATION
  Report Type: Spontaneous
  Country: US (occurrence: None)
  Receive Date: 20230516
  Receipt Date: 20230516
  Transmission Date: 20230722
  Serious: Yes (Hospitalization)
  Sender: FDA-Public Use
  Company Number: None

PATIENT
  Age: 66 Year
  Sex: Male

DRUGS (1)
  1. TREMFYA [Suspect]
     Active Substance: GUSELKUMAB
     Indication: Psoriasis
     Dosage: OTHER FREQUENCY : ON DAY 1;?
     Route: 058
     Dates: start: 20230301

REACTIONS (2)
  - Lung disorder [None]
  - Therapy interrupted [None]

NARRATIVE: CASE EVENT DATE: 20230302
